FAERS Safety Report 10153672 (Version 3)
Quarter: 2014Q2

REPORT INFORMATION
  Report Type: Spontaneous
  Country: US (occurrence: US)
  Receive Date: 20140506
  Receipt Date: 20140610
  Transmission Date: 20141212
  Serious: Yes (Hospitalization, Other)
  Sender: FDA-Public Use
  Company Number: US-009507513-1405USA001695

PATIENT
  Age: 15 Year
  Sex: Female
  Weight: 80.73 kg

DRUGS (1)
  1. NEXPLANON [Suspect]
     Indication: CONTRACEPTION
     Dosage: 1 SINGLE ROD
     Route: 058
     Dates: start: 20140314, end: 20140429

REACTIONS (2)
  - Generalised tonic-clonic seizure [Recovered/Resolved]
  - Somnolence [Unknown]
